FAERS Safety Report 6612861-6 (Version None)
Quarter: 2010Q1

REPORT INFORMATION
  Report Type: 
  Country: None (occurrence: None)
  Receive Date: 20100303
  Receipt Date: 20100226
  Transmission Date: 20100710
  Serious: Yes (Hospitalization, Other)
  Sender: FDA-Public Use
  Company Number: US-MERCK-0801USA03742

PATIENT
  Age: 70 Year
  Sex: Female
  Weight: 73 kg

DRUGS (5)
  1. FOSAMAX [Suspect]
     Indication: OSTEOPOROSIS
     Route: 048
     Dates: end: 20030401
  2. FOSAMAX [Suspect]
     Route: 048
     Dates: start: 20030401
  3. VERAPAMIL [Concomitant]
     Route: 065
     Dates: start: 20031012
  4. [THERAPY UNSPECIFIED] [Concomitant]
     Indication: HYPERCHOLESTEROLAEMIA
     Route: 065
     Dates: start: 20030101
  5. [THERAPY UNSPECIFIED] [Concomitant]
     Indication: HYPERTENSION
     Route: 065
     Dates: start: 19960101

REACTIONS (13)
  - DEPRESSION [None]
  - FISTULA [None]
  - GASTROINTESTINAL DISORDER [None]
  - GINGIVAL PAIN [None]
  - HYPOACUSIS [None]
  - IMPAIRED HEALING [None]
  - JAW DISORDER [None]
  - MYOFASCIAL PAIN SYNDROME [None]
  - ORAL DISORDER [None]
  - OSTEOMYELITIS CHRONIC [None]
  - OSTEONECROSIS [None]
  - STOMATITIS [None]
  - TOOTHACHE [None]
